FAERS Safety Report 8424470-7 (Version None)
Quarter: 2012Q2

REPORT INFORMATION
  Report Type: 
  Country: None (occurrence: None)
  Receive Date: 20120610
  Receipt Date: 20100615
  Transmission Date: 20120825
  Serious: Yes (Other)
  Sender: FDA-Public Use
  Company Number: PHHY2010PH094088

PATIENT
  Sex: Female

DRUGS (1)
  1. GLEEVEC [Suspect]
     Dates: start: 20090201

REACTIONS (4)
  - SPINAL OSTEOARTHRITIS [None]
  - METASTASES TO ADRENALS [None]
  - METASTASES TO LIVER [None]
  - GALLBLADDER DISORDER [None]
